FAERS Safety Report 7011725-6 (Version None)
Quarter: 2010Q3

REPORT INFORMATION
  Report Type: 
  Country: None (occurrence: None)
  Receive Date: 20100923
  Receipt Date: 20090326
  Transmission Date: 20110219
  Serious: No
  Sender: FDA-Public Use
  Company Number: US-WYE-H08754509

PATIENT
  Sex: Female

DRUGS (1)
  1. ADVIL COLD AND SINUS [Suspect]
     Indication: SINUS DISORDER
     Dosage: UNKNOWN
     Route: 048
     Dates: start: 20090325

REACTIONS (3)
  - DRUG EFFECT DECREASED [None]
  - EYE SWELLING [None]
  - LIP SWELLING [None]
